FAERS Safety Report 8337080-7 (Version None)
Quarter: 2012Q2

REPORT INFORMATION
  Report Type: 
  Country: None (occurrence: None)
  Receive Date: 20120504
  Receipt Date: 20110824
  Transmission Date: 20120825
  Serious: Yes (Other)
  Sender: FDA-Public Use
  Company Number: US-TEVA-2011003472

PATIENT
  Age: 42 Year
  Sex: Male

DRUGS (3)
  1. MIRAPEX [Concomitant]
  2. NUVIGIL [Suspect]
     Indication: SLEEP APNOEA SYNDROME
     Dosage: 250 MILLIGRAM;
     Route: 048
     Dates: start: 20101208
  3. PEPCID [Concomitant]

REACTIONS (3)
  - DYSPEPSIA [None]
  - DEPRESSION [None]
  - HEADACHE [None]
